FAERS Safety Report 21040924 (Version 2)
Quarter: 2025Q4

REPORT INFORMATION
  Report Type: Spontaneous
  Country: EU (occurrence: EU)
  Receive Date: 20220704
  Receipt Date: 20251027
  Transmission Date: 20260117
  Serious: Yes (Life-Threatening, Other)
  Sender: NOVARTIS
  Company Number: EU-NOVARTISPH-NVSC2022IT151720

PATIENT
  Age: 20 Year
  Sex: Male

DRUGS (5)
  1. AZATHIOPRINE [Suspect]
     Active Substance: AZATHIOPRINE
     Indication: Heart transplant
     Dosage: UNK
     Route: 065
     Dates: start: 1985
  2. AZATHIOPRINE [Suspect]
     Active Substance: AZATHIOPRINE
     Indication: Immunosuppressant drug therapy
  3. CYCLOSPORINE [Suspect]
     Active Substance: CYCLOSPORINE
     Indication: Heart transplant
     Dosage: UNK
     Route: 065
     Dates: start: 1985
  4. CYCLOSPORINE [Suspect]
     Active Substance: CYCLOSPORINE
     Indication: Immunosuppressant drug therapy
  5. ELBASVIR\GRAZOPREVIR [Concomitant]
     Active Substance: ELBASVIR\GRAZOPREVIR
     Indication: Hepatitis C
     Dosage: UNK
     Route: 065

REACTIONS (6)
  - Chronic kidney disease [Recovering/Resolving]
  - Plasma cell myeloma [Recovering/Resolving]
  - Basal cell carcinoma [Recovering/Resolving]
  - Heart transplant rejection [Unknown]
  - Dyslipidaemia [Recovering/Resolving]
  - Bronchopulmonary aspergillosis [Unknown]
